FAERS Safety Report 9990660 (Version 1)
Quarter: 2014Q1

REPORT INFORMATION
  Report Type: Spontaneous
  Country: US (occurrence: None)
  Receive Date: 20140307
  Receipt Date: 20140307
  Transmission Date: 20141002
  Serious: Yes (Other)
  Sender: FDA-Public Use
  Company Number: None

PATIENT
  Age: 66 Year
  Sex: Female
  Weight: 70.85 kg

DRUGS (3)
  1. RITUXAN [Suspect]
     Indication: WALDENSTROM^S MACROGLOBULINAEMIA
     Dosage: D 1, 8, 15, + 22
     Route: 042
     Dates: start: 20140210, end: 20140217
  2. VELCADE [Concomitant]
  3. RITUXAN [Concomitant]

REACTIONS (4)
  - Flushing [None]
  - Feeling hot [None]
  - Rash [None]
  - Rash [None]
